FAERS Safety Report 7958877-9 (Version None)
Quarter: 2011Q4

REPORT INFORMATION
  Report Type: 
  Country: None (occurrence: None)
  Receive Date: 20111201
  Receipt Date: 20111128
  Transmission Date: 20120403
  Serious: Yes (Death, Hospitalization)
  Sender: FDA-Public Use
  Company Number: AUR-APL-2011-05894

PATIENT
  Age: 18 Year
  Sex: Female
  Weight: 69 kg

DRUGS (8)
  1. METHOTREXATE [Concomitant]
  2. METHYLPREDNISOLONE [Concomitant]
  3. MORPHINE [Concomitant]
  4. NAPROXEN [Concomitant]
  5. OMEPRAZOLE [Concomitant]
  6. PREGABALIN [Concomitant]
  7. LAMOTRIGINE [Suspect]
     Indication: MIGRAINE
     Dosage: 12.5 MG (25 MG,1 IN 2 D),ORAL
     Route: 048
     Dates: start: 20101223
  8. ACETAMINOPHEN [Concomitant]

REACTIONS (12)
  - RASH [None]
  - FALL [None]
  - MULTI-ORGAN FAILURE [None]
  - SYSTEMIC LUPUS ERYTHEMATOSUS [None]
  - INAPPROPRIATE SCHEDULE OF DRUG ADMINISTRATION [None]
  - ARTHRALGIA [None]
  - GENERAL PHYSICAL HEALTH DETERIORATION [None]
  - BALANCE DISORDER [None]
  - BRAIN OEDEMA [None]
  - VIRAL INFECTION [None]
  - DRUG RASH WITH EOSINOPHILIA AND SYSTEMIC SYMPTOMS [None]
  - DISSEMINATED INTRAVASCULAR COAGULATION [None]
